FAERS Safety Report 4717048-X (Version None)
Quarter: 2005Q3

REPORT INFORMATION
  Report Type: 
  Country: None (occurrence: None)
  Receive Date: 20050719
  Receipt Date: 20050707
  Transmission Date: 20060218
  Serious: Yes (Other)
  Sender: FDA-Public Use
  Company Number: GB-JNJFOC-20050406449

PATIENT
  Sex: Female
  Weight: 78 kg

DRUGS (1)
  1. CAELYX [Suspect]
     Indication: OVARIAN CANCER
     Dosage: X 4 CYCLES
     Route: 042

REACTIONS (1)
  - ALVEOLITIS FIBROSING [None]
